FAERS Safety Report 23035389 (Version 2)
Quarter: 2023Q4

REPORT INFORMATION
  Report Type: Report from Study
  Country: US (occurrence: US)
  Receive Date: 20231005
  Receipt Date: 20231228
  Transmission Date: 20240110
  Serious: No
  Sender: FDA-Public Use
  Company Number: US-ACADIA PHARMACEUTICALS INC.-ACA-2023-TRF-004080

PATIENT

DRUGS (2)
  1. DAYBUE [Suspect]
     Active Substance: TROFINETIDE
     Route: 065
  2. DAYBUE [Suspect]
     Active Substance: TROFINETIDE
     Dosage: THREE TIMES PER DAY DOSING
     Route: 065

REACTIONS (3)
  - Flatulence [Unknown]
  - Flatulence [Unknown]
  - Inappropriate schedule of product administration [Unknown]
